FAERS Safety Report 6234506-X (Version None)
Quarter: 2009Q2

REPORT INFORMATION
  Report Type: 
  Country: None (occurrence: None)
  Receive Date: 20090618
  Receipt Date: 20081202
  Transmission Date: 20091009
  Serious: No
  Sender: FDA-Public Use
  Company Number: US-BRISTOL-MYERS SQUIBB COMPANY-14427488

PATIENT
  Age: 25 Year
  Sex: Female
  Weight: 64 kg

DRUGS (6)
  1. ABILIFY [Suspect]
     Indication: BIPOLAR DISORDER
  2. SINEMET [Suspect]
  3. LITHIUM CARBONATE [Concomitant]
  4. TRILEPTAL [Concomitant]
  5. KEPPRA [Concomitant]
  6. LAMICTAL [Concomitant]

REACTIONS (1)
  - MUSCLE SPASMS [None]
